FAERS Safety Report 19699080 (Version 2)
Quarter: 2021Q3

REPORT INFORMATION
  Report Type: Spontaneous
  Country: US (occurrence: US)
  Receive Date: 20210813
  Receipt Date: 20210823
  Transmission Date: 20211014
  Serious: No
  Sender: FDA-Public Use
  Company Number: US-FAGRON STERILE SERVICES-2114990

PATIENT
  Age: 9 Year
  Sex: Female
  Weight: 30.8 kg

DRUGS (1)
  1. ROCURONIUM BROMIDE INJ 10MG/ML (API) 5ML [Suspect]
     Active Substance: ROCURONIUM BROMIDE

REACTIONS (1)
  - Drug ineffective [None]
